FAERS Safety Report 6264813-6 (Version None)
Quarter: 2009Q3

REPORT INFORMATION
  Report Type: 
  Country: None (occurrence: None)
  Receive Date: 20090710
  Receipt Date: 20090703
  Transmission Date: 20100115
  Serious: Yes (Hospitalization)
  Sender: FDA-Public Use
  Company Number: ES-ABBOTT-05P-144-0314900-00

PATIENT
  Sex: Male
  Weight: 69 kg

DRUGS (3)
  1. HUMIRA [Suspect]
     Indication: RHEUMATOID ARTHRITIS
     Route: 058
     Dates: start: 20050223, end: 20050401
  2. HUMIRA [Suspect]
     Route: 058
     Dates: start: 20050515
  3. HUMIRA [Concomitant]
     Indication: RHEUMATOID ARTHRITIS
     Route: 058
     Dates: start: 20040401

REACTIONS (1)
  - ABDOMINAL WALL ABSCESS [None]
